FAERS Safety Report 6309873-9 (Version None)
Quarter: 2009Q3

REPORT INFORMATION
  Report Type: 
  Country: None (occurrence: None)
  Receive Date: 20090814
  Receipt Date: 20090806
  Transmission Date: 20100115
  Serious: Yes (Other)
  Sender: FDA-Public Use
  Company Number: AU-AVENTIS-200918400GDDC

PATIENT
  Age: 60 Year
  Sex: Male

DRUGS (5)
  1. ARAVA [Suspect]
     Indication: RHEUMATOID ARTHRITIS
     Route: 048
     Dates: start: 20061015
  2. GLUCOSAMINE [Concomitant]
     Dosage: DOSE: UNK
  3. ENALAPRIL MALEATE [Concomitant]
     Dosage: DOSE: UNK
  4. PREDNISOLONE [Concomitant]
     Dosage: DOSE: UNK
  5. ESCITALOPRAM [Concomitant]
     Dosage: DOSE: UNK

REACTIONS (1)
  - TRANSIENT ISCHAEMIC ATTACK [None]
